FAERS Safety Report 7344197-2 (Version None)
Quarter: 2011Q1

REPORT INFORMATION
  Report Type: 
  Country: None (occurrence: None)
  Receive Date: 20110310
  Receipt Date: 20100811
  Transmission Date: 20110831
  Serious: No
  Sender: FDA-Public Use
  Company Number: A0875156A

PATIENT
  Age: 69 Year
  Sex: Female

DRUGS (1)
  1. WALGREENS NICOTINE LOZENGE MINT 2 MG [Suspect]

REACTIONS (1)
  - NICOTINE DEPENDENCE [None]
